FAERS Safety Report 20231389 (Version 2)
Quarter: 2022Q1

REPORT INFORMATION
  Report Type: Report from Study
  Country: US (occurrence: US)
  Receive Date: 20211227
  Receipt Date: 20220111
  Transmission Date: 20220423
  Serious: Yes (Other)
  Sender: FDA-Public Use
  Company Number: US-TAKEDA-ALL1-2012-01074

PATIENT
  Age: 57 Year
  Sex: Male

DRUGS (6)
  1. LANADELUMAB [Suspect]
     Active Substance: LANADELUMAB
     Indication: Hereditary angioedema
     Dosage: 300 MILLIGRAM, MONTHLY
     Route: 050
  2. LANADELUMAB [Suspect]
     Active Substance: LANADELUMAB
     Dosage: UNK, Q2WEEKS
     Route: 065
     Dates: start: 201910
  3. LANADELUMAB [Suspect]
     Active Substance: LANADELUMAB
     Dosage: UNK, Q4WEEKS
     Route: 065
  4. FIRAZYR [Suspect]
     Active Substance: ICATIBANT ACETATE
     Indication: Hereditary angioedema
     Dosage: UNK UNK, UNKNOWN (SINGLE 3 ML SYRINGE)
     Route: 058
     Dates: start: 20120106
  5. FIRAZYR [Suspect]
     Active Substance: ICATIBANT ACETATE
     Indication: Hereditary angioedema
     Dosage: UNK UNK, UNKNOWN (SINGLE 3 ML SYRINGE)
     Route: 058
     Dates: start: 20120106
  6. STANOZOLOL [Concomitant]
     Active Substance: STANOZOLOL
     Dosage: UNK( STANOZOLOL REDUCED FROM 3 TO 2 TIMES PER WEEK), UNKNOWN
     Route: 065

REACTIONS (2)
  - Angioedema [Unknown]
  - Hereditary angioedema [Recovered/Resolved]

NARRATIVE: CASE EVENT DATE: 20120221
